FAERS Safety Report 6806913-5 (Version None)
Quarter: 2010Q2

REPORT INFORMATION
  Report Type: 
  Country: None (occurrence: None)
  Receive Date: 20100629
  Receipt Date: 20080527
  Transmission Date: 20101027
  Serious: No
  Sender: FDA-Public Use
  Company Number: US-PFIZER INC-2008045220

PATIENT
  Sex: Female
  Weight: 90.9 kg

DRUGS (2)
  1. TIKOSYN [Suspect]
     Indication: ATRIAL FIBRILLATION
     Dates: start: 20070717
  2. WARFARIN SODIUM [Concomitant]

REACTIONS (7)
  - ARTHRALGIA [None]
  - COUGH [None]
  - HEADACHE [None]
  - LIMB DISCOMFORT [None]
  - PAIN [None]
  - PAIN IN EXTREMITY [None]
  - SLUGGISHNESS [None]
